FAERS Safety Report 9678655 (Version 2)
Quarter: 2013Q4

REPORT INFORMATION
  Report Type: Report from Study
  Country: DE (occurrence: DE)
  Receive Date: 20131108
  Receipt Date: 20131108
  Transmission Date: 20140711
  Serious: Yes (Hospitalization)
  Sender: FDA-Public Use
  Company Number: DE-VERTEX PHARMACEUTICALS INC-000000000000000649

PATIENT
  Age: 60 Year
  Sex: Female
  Weight: 91 kg

DRUGS (13)
  1. VX-950 (TELAPREVIR) [Suspect]
     Indication: HEPATITIS C
     Dosage: DOSAGE FORM: TABLET
     Route: 048
     Dates: start: 20111216, end: 20120314
  2. COPEGUS [Concomitant]
     Indication: HEPATITIS C
     Dosage: 800 MG, QD
     Route: 048
     Dates: start: 20120413, end: 20120419
  3. COPEGUS [Concomitant]
     Dosage: 1000 MG, QD
     Route: 048
     Dates: start: 20120402, end: 20120412
  4. COPEGUS [Concomitant]
     Dosage: 800 MG, QD
     Route: 048
     Dates: start: 20120322, end: 20120401
  5. COPEGUS [Concomitant]
     Dosage: 1000 MG, QD
     Route: 048
     Dates: start: 20120315, end: 20120318
  6. COPEGUS [Concomitant]
     Dosage: 600 MG, QD
     Route: 048
     Dates: start: 20120420
  7. COPEGUS [Concomitant]
     Dosage: 1200 MG, QD
     Route: 048
     Dates: start: 20111216, end: 20120314
  8. PEGASYS [Concomitant]
     Indication: HEPATITIS C
     Dosage: 180 ?G, QW
     Route: 058
     Dates: start: 20111216, end: 20120315
  9. PEGASYS [Concomitant]
     Dosage: 135 ?G, QW
     Route: 058
     Dates: start: 20120316, end: 20120413
  10. PEGASYS [Concomitant]
     Dosage: 180 ?G, QW
     Route: 058
     Dates: start: 20120420
  11. BETA-BLOCKER (NAME UNSPECIFIED) [Concomitant]
     Indication: HYPERTENSION
     Dosage: 2.5 MG, QD
     Route: 048
     Dates: start: 20090101
  12. ALL OTHER THERAPEUTIC PRODUCTS [Concomitant]
     Indication: ADVERSE EVENT
     Dosage: DOSAGE FORM: CREAM
     Dates: start: 20120210
  13. LORATADIN [Concomitant]
     Indication: ADVERSE EVENT
     Dosage: 10 MG, QD
     Route: 048
     Dates: start: 20120210

REACTIONS (1)
  - Bacteraemia [Recovered/Resolved]
